FAERS Safety Report 23781314 (Version 1)
Quarter: 2024Q2

REPORT INFORMATION
  Report Type: Spontaneous
  Country: US (occurrence: US)
  Receive Date: 20240425
  Receipt Date: 20240425
  Transmission Date: 20240715
  Serious: No
  Sender: FDA-Public Use
  Company Number: US-BRISTOL-MYERS SQUIBB COMPANY-2024-064496

PATIENT
  Age: 71 Year
  Sex: Female
  Weight: 96.62 kg

DRUGS (1)
  1. REVLIMID [Suspect]
     Active Substance: LENALIDOMIDE
     Indication: Plasma cell myeloma
     Route: 048
     Dates: start: 20240229

REACTIONS (5)
  - Diarrhoea [Unknown]
  - Gingival swelling [Unknown]
  - Gingival bleeding [Unknown]
  - Peripheral swelling [Unknown]
  - Cough [Unknown]
